FAERS Safety Report 9719624 (Version 8)
Quarter: 2014Q1

REPORT INFORMATION
  Report Type: Spontaneous
  Country: SE (occurrence: SE)
  Receive Date: 20131128
  Receipt Date: 20140327
  Transmission Date: 20141002
  Serious: Yes (Hospitalization, Other)
  Sender: FDA-Public Use
  Company Number: SE-AMGEN-SWESP2013082470

PATIENT
  Age: 38 Year
  Sex: Male
  Weight: 76 kg

DRUGS (5)
  1. ARANESP [Suspect]
     Indication: RENAL FAILURE CHRONIC
     Dosage: 60 MUG, QWK
     Route: 058
     Dates: start: 20100305
  2. ARANESP [Suspect]
     Dosage: 150 MUG, QWK
     Route: 042
  3. RITUXIMAB [Concomitant]
     Dosage: UNK
     Route: 065
     Dates: start: 2009
  4. AZATHIOPRINE [Concomitant]
     Dosage: UNK
     Route: 065
     Dates: start: 2009
  5. CYCLOPHOSPHAMIDE [Concomitant]
     Dosage: UNK
     Route: 065
     Dates: start: 2010

REACTIONS (18)
  - Bone marrow failure [Not Recovered/Not Resolved]
  - Hepatic ischaemia [Unknown]
  - Renal impairment [Unknown]
  - Abdominal pain [Unknown]
  - Splenomegaly [Unknown]
  - C-reactive protein increased [Unknown]
  - Pyrexia [Unknown]
  - Ascites [Unknown]
  - Fluid retention [Unknown]
  - Pleural effusion [Unknown]
  - Lupus endocarditis [Unknown]
  - Haemochromatosis [Unknown]
  - Aplasia pure red cell [Not Recovered/Not Resolved]
  - Biliary tract disorder [Unknown]
  - Asthenia [Unknown]
  - Drug effect decreased [Unknown]
  - Fatigue [Unknown]
  - Lethargy [Unknown]
